FAERS Safety Report 6305490-5 (Version None)
Quarter: 2009Q3

REPORT INFORMATION
  Report Type: 
  Country: None (occurrence: None)
  Receive Date: 20090811
  Receipt Date: 20090731
  Transmission Date: 20100115
  Serious: Yes (Other)
  Sender: FDA-Public Use
  Company Number: JP-TYCO HEALTHCARE/MALLINCKRODT-T200901245

PATIENT
  Age: 71 Year
  Sex: Male

DRUGS (8)
  1. OPTIRAY 350 [Suspect]
     Indication: COMPUTERISED TOMOGRAM ABDOMEN
     Dosage: 100 ML, SINGLE
     Route: 042
     Dates: start: 20090618, end: 20090618
  2. HYDROCORTISONE [Concomitant]
     Indication: PREMEDICATION
     Dosage: 200 MG, SINGLE
     Dates: start: 20090618, end: 20090618
  3. HYDROCORTISONE [Concomitant]
     Dosage: 200 MG WITH 500 ML SALINE (DIV), SINGLE
     Route: 042
     Dates: start: 20090618, end: 20090618
  4. SPIRONOLACTONE [Concomitant]
     Indication: OEDEMA DUE TO HEPATIC DISEASE
     Dosage: 25 MG, BID
     Route: 048
  5. OMEPRAZOLE [Concomitant]
     Indication: REFLUX OESOPHAGITIS
     Dosage: 10 MG, QD
     Route: 048
     Dates: start: 20060411
  6. GLICLAZIDE [Concomitant]
     Indication: DIABETES MELLITUS
     Dosage: 40 MG, QD
     Route: 048
  7. URSODIOL [Concomitant]
     Indication: HEPATIC CIRRHOSIS
     Dosage: 300 MG, TID
     Route: 048
  8. FUROSEMIDE [Concomitant]
     Indication: OEDEMA DUE TO HEPATIC DISEASE
     Dosage: 20 MG, QD
     Route: 048

REACTIONS (1)
  - ANAPHYLACTOID REACTION [None]
